FAERS Safety Report 19779825 (Version 1)
Quarter: 2021Q3

REPORT INFORMATION
  Report Type: Spontaneous
  Country: JP (occurrence: JP)
  Receive Date: 20210902
  Receipt Date: 20210902
  Transmission Date: 20211014
  Serious: Yes (Hospitalization, Other)
  Sender: FDA-Public Use
  Company Number: JP-TEVA-2021-JP-1949926

PATIENT
  Age: 51 Year
  Sex: Male

DRUGS (4)
  1. CARBOPLATIN. [Suspect]
     Active Substance: CARBOPLATIN
     Indication: LUNG ADENOCARCINOMA STAGE IV
     Dosage: RECEIVED 4 COURSES
     Route: 065
     Dates: start: 201704
  2. NIVOLUMAB [Suspect]
     Active Substance: NIVOLUMAB
     Indication: LUNG ADENOCARCINOMA STAGE IV
     Route: 065
     Dates: start: 201808
  3. HYDROCORTISONE. [Concomitant]
     Active Substance: HYDROCORTISONE
     Indication: PRIMARY HYPOTHYROIDISM
     Dosage: 15 MILLIGRAM DAILY;
     Route: 048
  4. PACLITAXEL. [Suspect]
     Active Substance: PACLITAXEL
     Indication: LUNG ADENOCARCINOMA STAGE IV
     Dosage: RECEIVED 4 COURSES INITIALLY WITH CARBOPLATIN THEN RECEIVED MAINTENANCE MONTHERAPY
     Route: 065
     Dates: start: 201704, end: 201710

REACTIONS (7)
  - Primary adrenal insufficiency [Unknown]
  - Interstitial lung disease [Unknown]
  - Rash [Recovering/Resolving]
  - Drug ineffective [Unknown]
  - Thyroiditis [Unknown]
  - Primary hypothyroidism [Unknown]
  - Liver injury [Recovered/Resolved]

NARRATIVE: CASE EVENT DATE: 2017
